FAERS Safety Report 7942878-0 (Version None)
Quarter: 2011Q4

REPORT INFORMATION
  Report Type: 
  Country: None (occurrence: None)
  Receive Date: 20111128
  Receipt Date: 20111116
  Transmission Date: 20120403
  Serious: Yes (Death)
  Sender: FDA-Public Use
  Company Number: JP-MERCK-1104USA00725

PATIENT
  Age: 43 Year
  Sex: Male

DRUGS (26)
  1. ADALAT [Concomitant]
     Route: 048
  2. CALCIUM CARBONATE [Concomitant]
     Route: 048
     Dates: start: 20080101, end: 20110422
  3. RENAGEL [Concomitant]
     Route: 048
     Dates: start: 20080101, end: 20110423
  4. RABEPRAZOLE SODIUM [Concomitant]
     Route: 048
     Dates: start: 20110421, end: 20110525
  5. SCOPOLAMINE [Concomitant]
     Route: 048
     Dates: start: 20110421, end: 20110525
  6. LACTULOSE [Concomitant]
     Route: 048
     Dates: start: 20110421, end: 20110525
  7. ASPIRIN [Concomitant]
     Route: 048
     Dates: start: 20080101, end: 20110429
  8. KAYTWO [Concomitant]
     Route: 042
     Dates: start: 20110420, end: 20110525
  9. FRAGMIN [Concomitant]
     Route: 042
     Dates: start: 20110422
  10. NOROXIN [Suspect]
     Indication: ENTERITIS INFECTIOUS
     Route: 048
     Dates: start: 20110305, end: 20110311
  11. LASIX [Concomitant]
     Route: 048
     Dates: start: 20100306
  12. PRIMPERAN TAB [Concomitant]
     Route: 048
     Dates: start: 20110302, end: 20110305
  13. PRIMPERAN TAB [Concomitant]
     Route: 042
     Dates: start: 20110302, end: 20110302
  14. CATAPRES [Concomitant]
     Route: 048
     Dates: start: 20090124, end: 20110415
  15. ALFAROL [Concomitant]
     Route: 048
     Dates: start: 20080101
  16. PURSENNID [Concomitant]
     Route: 048
     Dates: start: 20080101
  17. OLMESARTAN MEDOXOMIL [Concomitant]
     Route: 048
     Dates: start: 20100107, end: 20110510
  18. URSO 250 [Concomitant]
     Route: 048
     Dates: start: 20110421, end: 20110525
  19. SODIUM CHLORIDE [Concomitant]
     Route: 042
     Dates: start: 20110420, end: 20110525
  20. CEFAZOLIN SODIUM [Concomitant]
     Route: 048
     Dates: start: 20110302, end: 20110305
  21. NOROXIN [Suspect]
     Indication: PYREXIA
     Route: 048
     Dates: start: 20110305, end: 20110311
  22. ADALAT [Concomitant]
     Route: 048
     Dates: start: 20080101, end: 20110510
  23. FRAGMIN [Concomitant]
     Route: 042
     Dates: start: 20080101
  24. ESTAZOLAM [Concomitant]
     Route: 048
     Dates: start: 20080101
  25. CALCIUM CARBONATE [Concomitant]
     Dosage: 2A-3A DAY
     Route: 042
     Dates: start: 20110422
  26. SOLITA T-1 [Concomitant]
     Route: 065
     Dates: start: 20110302, end: 20110302

REACTIONS (1)
  - HEPATITIS ACUTE [None]
